FAERS Safety Report 9943337 (Version 2)
Quarter: 2019Q2

REPORT INFORMATION
  Report Type: Spontaneous
  Country: US (occurrence: US)
  Receive Date: 20140303
  Receipt Date: 20190625
  Transmission Date: 20190711
  Serious: Yes (Life-Threatening, Other)
  Sender: FDA-Public Use
  Company Number: US-PFIZER INC-2014058013

PATIENT
  Age: 54 Year
  Sex: Male
  Weight: 81.65 kg

DRUGS (1)
  1. ZITHROMAX [Suspect]
     Active Substance: AZITHROMYCIN DIHYDRATE
     Indication: INFECTION
     Dosage: UNK
     Dates: start: 20140220, end: 20140223

REACTIONS (6)
  - Dyspnoea [Unknown]
  - Swollen tongue [Unknown]
  - Bladder cancer [Unknown]
  - Hypoaesthesia [Unknown]
  - Cerebrovascular accident [Unknown]
  - Headache [Unknown]

NARRATIVE: CASE EVENT DATE: 20140221
